FAERS Safety Report 12902954 (Version 1)
Quarter: 2016Q4

REPORT INFORMATION
  Report Type: Spontaneous
  Country: US (occurrence: US)
  Receive Date: 20161102
  Receipt Date: 20161102
  Transmission Date: 20170207
  Serious: No
  Sender: FDA-Public Use
  Company Number: US-JNJFOC-20160912912

PATIENT
  Age: 57 Year
  Sex: Female
  Weight: 83.92 kg

DRUGS (3)
  1. HERCEPTIN [Concomitant]
     Active Substance: TRASTUZUMAB
     Indication: BREAST CANCER
     Route: 065
     Dates: start: 201603
  2. IMODIUM MULTI-SYMPTOM RELIEF [Suspect]
     Active Substance: DIMETHICONE\LOPERAMIDE HYDROCHLORIDE
     Route: 048
  3. IMODIUM MULTI-SYMPTOM RELIEF [Suspect]
     Active Substance: DIMETHICONE\LOPERAMIDE HYDROCHLORIDE
     Indication: PROPHYLAXIS
     Dosage: SIX A DAY
     Route: 048
     Dates: start: 20160901, end: 20160901

REACTIONS (5)
  - Wrong drug administered [Unknown]
  - Product difficult to swallow [Unknown]
  - Product quality issue [Unknown]
  - Retching [Not Recovered/Not Resolved]
  - Product size issue [Unknown]

NARRATIVE: CASE EVENT DATE: 20160901
